FAERS Safety Report 25951277 (Version 1)
Quarter: 2025Q4

REPORT INFORMATION
  Report Type: Report from Study
  Country: CA (occurrence: CA)
  Receive Date: 20251023
  Receipt Date: 20251023
  Transmission Date: 20260119
  Serious: Yes (Other)
  Sender: ABBVIE
  Company Number: CA-ABBVIE-6512664

PATIENT
  Sex: Female

DRUGS (2)
  1. SKYRIZI [Suspect]
     Active Substance: RISANKIZUMAB-RZAA
     Indication: Colitis ulcerative
     Route: 042
  2. PREDNISONE [Concomitant]
     Active Substance: PREDNISONE
     Indication: Colitis
     Dosage: 5 MG ?10 MG DAILY X 4 DAYS AND THEN 5MG DAILY X 7 DAYS

REACTIONS (2)
  - Colitis [Recovering/Resolving]
  - Anxiety [Unknown]
